FAERS Safety Report 9649337 (Version 2)
Quarter: 2013Q4

REPORT INFORMATION
  Report Type: Spontaneous
  Country: US (occurrence: US)
  Receive Date: 20131028
  Receipt Date: 20131028
  Transmission Date: 20140711
  Serious: Yes (Hospitalization, Other)
  Sender: FDA-Public Use
  Company Number: US-PFIZER INC-2013183864

PATIENT
  Age: 77 Year
  Sex: Female

DRUGS (2)
  1. REVATIO [Suspect]
     Indication: PULMONARY HYPERTENSION
     Dosage: 20 MG, 3X/DAY
     Dates: start: 20130108
  2. REVATIO [Suspect]
     Dosage: 20 MG, UNK
     Dates: start: 20130118

REACTIONS (2)
  - Fall [Unknown]
  - Labile blood pressure [Unknown]
